FAERS Safety Report 10098237 (Version 1)
Quarter: 2014Q2

REPORT INFORMATION
  Report Type: Spontaneous
  Country: US (occurrence: US)
  Receive Date: 20140423
  Receipt Date: 20140423
  Transmission Date: 20141212
  Serious: Yes (Other)
  Sender: FDA-Public Use
  Company Number: US-BRISTOL-MYERS SQUIBB COMPANY-20342648

PATIENT
  Age: 70 Year
  Sex: Male
  Weight: 99.77 kg

DRUGS (3)
  1. IPILIMUMAB [Suspect]
     Indication: METASTATIC MALIGNANT MELANOMA
     Dosage: 4 DOSES
     Dates: start: 201308
  2. LISINOPRIL + HCTZ [Concomitant]
     Dosage: 1DF=20-12.5MG
  3. EXFORGE [Concomitant]
     Dosage: 1DF=5-320MG

REACTIONS (1)
  - Malignant neoplasm progression [Unknown]
